FAERS Safety Report 7366074-3 (Version None)
Quarter: 2011Q1

REPORT INFORMATION
  Report Type: 
  Country: None (occurrence: None)
  Receive Date: 20110322
  Receipt Date: 20110308
  Transmission Date: 20110831
  Serious: Yes (Hospitalization, Other)
  Sender: FDA-Public Use
  Company Number: US-JNJFOC-20080800793

PATIENT
  Sex: Female
  Weight: 43.4 kg

DRUGS (6)
  1. AZATHIOPRINE [Concomitant]
  2. REMICADE [Suspect]
     Dosage: TOTAL 4 DOSES
     Route: 042
  3. MERCAPTOPURINE [Concomitant]
  4. MESALAMINE [Concomitant]
  5. REMICADE [Suspect]
     Indication: INFLAMMATORY BOWEL DISEASE
     Route: 042
  6. MERCAPTOPURINE [Concomitant]

REACTIONS (2)
  - INTESTINAL STENOSIS [None]
  - URINARY TRACT INFECTION [None]
